FAERS Safety Report 9455367 (Version 1)
Quarter: 2013Q3

REPORT INFORMATION
  Report Type: Spontaneous
  Country: UA (occurrence: UA)
  Receive Date: 20130813
  Receipt Date: 20130813
  Transmission Date: 20140515
  Serious: Yes (Other)
  Sender: FDA-Public Use
  Company Number: PHHY2013UA084006

PATIENT
  Age: 55 Year
  Sex: Female
  Weight: 36 kg

DRUGS (1)
  1. AFINITOR [Suspect]
     Indication: PANCREATIC NEUROENDOCRINE TUMOUR
     Dosage: 10 MG, QD
     Route: 048
     Dates: start: 20130725

REACTIONS (7)
  - Dysphonia [Unknown]
  - Mucosal dryness [Unknown]
  - Throat irritation [Unknown]
  - Oral discomfort [Unknown]
  - Mouth ulceration [Not Recovered/Not Resolved]
  - Lip ulceration [Unknown]
  - Aphthous stomatitis [Unknown]
